FAERS Safety Report 22200372 (Version 6)
Quarter: 2024Q4

REPORT INFORMATION
  Report Type: Spontaneous
  Country: GB (occurrence: GB)
  Receive Date: 20230412
  Receipt Date: 20241129
  Transmission Date: 20250114
  Serious: Yes (Life-Threatening, Hospitalization, Other)
  Sender: JOHNSON AND JOHNSON
  Company Number: GB-ViiV Healthcare Limited-GB2022GSK040641

PATIENT
  Age: 55 Year
  Sex: Male
  Weight: 74 kg

DRUGS (2)
  1. RILPIVIRINE [Suspect]
     Active Substance: RILPIVIRINE
     Indication: HIV infection
     Dosage: UNK
     Route: 030
     Dates: end: 20211119
  2. CABOTEGRAVIR [Suspect]
     Active Substance: CABOTEGRAVIR
     Indication: HIV infection
     Dosage: UNK
     Route: 030
     Dates: end: 20211119

REACTIONS (2)
  - Small intestinal obstruction [Not Recovered/Not Resolved]
  - Malignant neoplasm progression [Unknown]

NARRATIVE: CASE EVENT DATE: 20211126
